FAERS Safety Report 17689098 (Version 1)
Quarter: 2020Q2

REPORT INFORMATION
  Report Type: Spontaneous
  Country: MX (occurrence: MX)
  Receive Date: 20200421
  Receipt Date: 20200421
  Transmission Date: 20200714
  Serious: Yes (Death)
  Sender: FDA-Public Use
  Company Number: NVSC2020MX105725

PATIENT

DRUGS (4)
  1. VINCRISTINE [Suspect]
     Active Substance: VINCRISTINE
     Indication: CASTLEMAN^S DISEASE
     Dosage: TWO CYCLES
     Route: 065
  2. PREDNISONE. [Suspect]
     Active Substance: PREDNISONE
     Indication: CASTLEMAN^S DISEASE
     Dosage: TWO CYCLES
     Route: 065
  3. DOXORUBICIN [Suspect]
     Active Substance: DOXORUBICIN
     Indication: CASTLEMAN^S DISEASE
     Dosage: TWO CYCLES
     Route: 065
  4. CYCLOPHOSPHAMIDE. [Suspect]
     Active Substance: CYCLOPHOSPHAMIDE
     Indication: CASTLEMAN^S DISEASE
     Dosage: TWO CYCLES
     Route: 065

REACTIONS (2)
  - Autoimmune haemolytic anaemia [Fatal]
  - Product use in unapproved indication [Unknown]
